FAERS Safety Report 8286826 (Version 3)
Quarter: 2014Q1

REPORT INFORMATION
  Report Type: Spontaneous
  Country: US (occurrence: None)
  Receive Date: 20111122
  Receipt Date: 20130107
  Transmission Date: 20141002
  Serious: Yes (Other)
  Sender: FDA-Public Use
  Company Number: PHHY2011US54704

PATIENT
  Age: 57 Year
  Sex: Male

DRUGS (2)
  1. GILENYA [Suspect]
     Indication: RELAPSING-REMITTING MULTIPLE SCLEROSIS
     Route: 048
     Dates: start: 20110602, end: 20110615
  2. FAMPRIDINE (FAMPRIDINE) [Concomitant]

REACTIONS (8)
  - Pain in extremity [None]
  - Muscular weakness [None]
  - Macular oedema [None]
  - Aura [None]
  - Multiple sclerosis relapse [None]
  - Photopsia [None]
  - Vision blurred [None]
  - Eye disorder [None]
